FAERS Safety Report 19423018 (Version 1)
Quarter: 2021Q2

REPORT INFORMATION
  Report Type: Spontaneous
  Country: US (occurrence: US)
  Receive Date: 20210616
  Receipt Date: 20210616
  Transmission Date: 20210717
  Serious: No
  Sender: FDA-Public Use
  Company Number: US-TEVA-2021-US-1918323

PATIENT
  Sex: Female

DRUGS (34)
  1. ALBUTEROL. [Suspect]
     Active Substance: ALBUTEROL
  2. OLANZAPINE. [Suspect]
     Active Substance: OLANZAPINE
     Route: 065
  3. PSEUDOEPHEDRINE. [Suspect]
     Active Substance: PSEUDOEPHEDRINE HYDROCHLORIDE
     Route: 065
  4. SERTRALINE [Suspect]
     Active Substance: SERTRALINE HYDROCHLORIDE
     Route: 065
  5. FEXOFENADINE [Concomitant]
     Active Substance: FEXOFENADINE HYDROCHLORIDE
     Route: 065
  6. LEVALBUTEROL TARTRATE. [Concomitant]
     Active Substance: LEVALBUTEROL TARTRATE
     Route: 065
  7. CETIRIZINE [Suspect]
     Active Substance: CETIRIZINE HYDROCHLORIDE
     Route: 065
  8. LORATADINE. [Suspect]
     Active Substance: LORATADINE
     Route: 065
  9. LURASIDONE [Suspect]
     Active Substance: LURASIDONE
     Route: 065
  10. ALBUTEROL. [Suspect]
     Active Substance: ALBUTEROL
  11. NITROFURANTOIN. [Suspect]
     Active Substance: NITROFURANTOIN
     Route: 065
  12. TRAMADOL. [Suspect]
     Active Substance: TRAMADOL
     Route: 065
  13. METFORMIN [Suspect]
     Active Substance: METFORMIN HYDROCHLORIDE
     Route: 065
  14. DEXLANSOPRAZOLE [Concomitant]
     Active Substance: DEXLANSOPRAZOLE
     Route: 065
  15. CLINDAMYCIN. [Suspect]
     Active Substance: CLINDAMYCIN
     Route: 065
  16. ARIPIPRAZOLE. [Suspect]
     Active Substance: ARIPIPRAZOLE
     Route: 065
  17. LEMBOREXANT [Concomitant]
     Active Substance: LEMBOREXANT
     Route: 065
  18. LISINOPRIL. [Concomitant]
     Active Substance: LISINOPRIL
     Route: 065
  19. AUSTEDO [Concomitant]
     Active Substance: DEUTETRABENAZINE
     Indication: TARDIVE DYSKINESIA
     Dosage: 6 MILLIGRAM DAILY; ONE TABLET DAILY WITH SUPPER
     Route: 065
  20. ALBUTEROL. [Suspect]
     Active Substance: ALBUTEROL
     Route: 065
  21. ALBUTEROL. [Suspect]
     Active Substance: ALBUTEROL
  22. RISPERIDONE. [Suspect]
     Active Substance: RISPERIDONE
     Route: 065
  23. DIVALPROEX [Concomitant]
     Active Substance: DIVALPROEX SODIUM
     Route: 065
  24. WARFARIN [Concomitant]
     Active Substance: WARFARIN
     Route: 065
  25. WARFARIN [Concomitant]
     Active Substance: WARFARIN
     Route: 065
  26. GLIPIZIDE XL [Concomitant]
     Active Substance: GLIPIZIDE
     Route: 065
  27. HYDROCODONE BITARTRATE AND ACETAMINOPHEN [Concomitant]
     Active Substance: ACETAMINOPHEN\HYDROCODONE BITARTRATE
     Route: 065
  28. LEVOTHYROXINE SODIUM. [Concomitant]
     Active Substance: LEVOTHYROXINE SODIUM
     Route: 065
  29. MONTELUKAST [Concomitant]
     Active Substance: MONTELUKAST SODIUM
     Route: 065
  30. SERTACONAZOLE NITRATE [Concomitant]
     Active Substance: SERTACONAZOLE NITRATE
     Route: 065
  31. TRIAMCINOLONE ACET [Concomitant]
     Route: 065
  32. WARFARIN [Concomitant]
     Active Substance: WARFARIN
     Route: 065
  33. PENICILLIN [Suspect]
     Active Substance: PENICILLIN
     Route: 065
  34. OMEPRAZOLE. [Concomitant]
     Active Substance: OMEPRAZOLE
     Route: 065

REACTIONS (2)
  - Adverse drug reaction [Unknown]
  - Drug hypersensitivity [Unknown]
